FAERS Safety Report 10405695 (Version 1)
Quarter: 2014Q3

REPORT INFORMATION
  Report Type: Spontaneous
  Country: DE (occurrence: DE)
  Receive Date: 20140825
  Receipt Date: 20140825
  Transmission Date: 20150326
  Serious: Yes (Other)
  Sender: FDA-Public Use
  Company Number: PHHY2014DE103160

PATIENT
  Sex: Male

DRUGS (1)
  1. RASILEZ [Suspect]
     Active Substance: ALISKIREN
     Dosage: 150 MG, UNK
     Route: 048

REACTIONS (4)
  - Drug ineffective [Unknown]
  - Intestinal fistula [Unknown]
  - Blood pressure increased [Unknown]
  - Wrong technique in drug usage process [Unknown]
